FAERS Safety Report 20532553 (Version 2)
Quarter: 2022Q1

REPORT INFORMATION
  Report Type: Spontaneous
  Country: CN (occurrence: CN)
  Receive Date: 20220301
  Receipt Date: 20220302
  Transmission Date: 20220423
  Serious: Yes (Hospitalization)
  Sender: FDA-Public Use
  Company Number: CN-009507513-2202CHN008246

PATIENT
  Age: 46 Year
  Sex: Female
  Weight: 56 kg

DRUGS (2)
  1. KEYTRUDA [Suspect]
     Active Substance: PEMBROLIZUMAB
     Indication: Lung neoplasm malignant
     Dosage: 200 MG, ONCE
     Route: 041
     Dates: end: 20220128
  2. SODIUM CHLORIDE [Concomitant]
     Active Substance: SODIUM CHLORIDE
     Dosage: 100 MILLILITER
     Dates: start: 20220128

REACTIONS (4)
  - Drug eruption [Recovering/Resolving]
  - Pruritus [Recovering/Resolving]
  - Rash maculo-papular [Recovering/Resolving]
  - Skin discomfort [Unknown]

NARRATIVE: CASE EVENT DATE: 20220201
